FAERS Safety Report 8666780 (Version 2)
Quarter: 2013Q4

REPORT INFORMATION
  Report Type: Spontaneous
  Country: CH (occurrence: CH)
  Receive Date: 20120716
  Receipt Date: 20131101
  Transmission Date: 20140711
  Serious: Yes (Hospitalization)
  Sender: FDA-Public Use
  Company Number: CH-009507513-1207CHE000758

PATIENT
  Age: 72 Year
  Sex: Female

DRUGS (5)
  1. REMERON [Suspect]
     Dosage: 15 MG, QD
     Route: 048
     Dates: start: 201202, end: 20120418
  2. TOREM [Suspect]
     Indication: DIURETIC THERAPY
     Dosage: 5 MG, QD
     Route: 048
     Dates: end: 20120418
  3. ASPIRIN CARDIO [Concomitant]
     Dosage: UNK
  4. CALCIMAGON D3 [Concomitant]
     Dosage: UNK
  5. PANTOZOL [Concomitant]
     Dosage: UNK

REACTIONS (2)
  - Inappropriate antidiuretic hormone secretion [Recovered/Resolved]
  - Hyponatraemia [Recovered/Resolved]
